FAERS Safety Report 10066219 (Version 1)
Quarter: 2014Q2

REPORT INFORMATION
  Report Type: Spontaneous
  Country: US (occurrence: US)
  Receive Date: 20140408
  Receipt Date: 20140408
  Transmission Date: 20141212
  Serious: Yes (Hospitalization)
  Sender: FDA-Public Use
  Company Number: US-ELI_LILLY_AND_COMPANY-US201404000697

PATIENT
  Age: 74 Year
  Sex: Female

DRUGS (5)
  1. HUMULIN 30% REGULAR, 70% NPH [Suspect]
     Indication: TYPE 2 DIABETES MELLITUS
     Dosage: 10 U, EACH MORNING
     Route: 065
     Dates: start: 20140324, end: 20140327
  2. HUMULIN 30% REGULAR, 70% NPH [Suspect]
     Dosage: 14 U, EACH EVENING
     Route: 065
     Dates: start: 20140324, end: 20140327
  3. GLIPIZIDE [Concomitant]
  4. LANTUS [Concomitant]
  5. PREDNISONE [Concomitant]
     Indication: AUTOIMMUNE DISORDER

REACTIONS (2)
  - Hypoglycaemia [Unknown]
  - Gastritis [Unknown]
